FAERS Safety Report 12965473 (Version 2)
Quarter: 2016Q4

REPORT INFORMATION
  Report Type: Spontaneous
  Country: FR (occurrence: FR)
  Receive Date: 20161122
  Receipt Date: 20161124
  Transmission Date: 20170207
  Serious: Yes (Other)
  Sender: FDA-Public Use
  Company Number: FR-JNJFOC-20161120095

PATIENT
  Age: 58 Year
  Sex: Female
  Weight: 55 kg

DRUGS (1)
  1. SIMPONI [Suspect]
     Active Substance: GOLIMUMAB
     Indication: RHEUMATOID ARTHRITIS
     Route: 058
     Dates: start: 201604

REACTIONS (5)
  - Abdominal distension [Unknown]
  - Fungal rhinitis [Unknown]
  - Eye pain [Unknown]
  - Bacterial vaginosis [Unknown]
  - Fungal infection [Unknown]

NARRATIVE: CASE EVENT DATE: 201605
